FAERS Safety Report 21832155 (Version 2)
Quarter: 2023Q1

REPORT INFORMATION
  Report Type: Spontaneous
  Country: US (occurrence: US)
  Receive Date: 20230106
  Receipt Date: 20230220
  Transmission Date: 20230418
  Serious: No
  Sender: FDA-Public Use
  Company Number: US-MYLANLABS-2022M1148195

PATIENT
  Sex: Male

DRUGS (1)
  1. SEMGLEE (INSULIN GLARGINE-YFGN) [Suspect]
     Active Substance: INSULIN GLARGINE-YFGN
     Indication: Type 2 diabetes mellitus
     Dosage: 20 INTERNATIONAL UNIT, QD (20 UNITS ONCE A DAY)
     Route: 058
     Dates: start: 20221216

REACTIONS (4)
  - Injection site atrophy [Unknown]
  - Device delivery system issue [Unknown]
  - Device leakage [Unknown]
  - Product storage error [Unknown]
